FAERS Safety Report 21484338 (Version 2)
Quarter: 2022Q4

REPORT INFORMATION
  Report Type: Report from Study
  Country: AT (occurrence: AT)
  Receive Date: 20221020
  Receipt Date: 20221221
  Transmission Date: 20230113
  Serious: Yes (Hospitalization)
  Sender: FDA-Public Use
  Company Number: None

PATIENT
  Age: 45 Year
  Sex: Female
  Weight: 46 kg

DRUGS (25)
  1. CAPECITABINE [Suspect]
     Active Substance: CAPECITABINE
     Indication: HER2 positive breast cancer
     Dosage: MOST RECENT DOSE PRIOR TO THE EVENT: 10/NOV/2021
     Dates: start: 20211014
  2. ATEZOLIZUMAB [Suspect]
     Active Substance: ATEZOLIZUMAB
     Indication: HER2 positive breast cancer
     Dates: start: 20220118, end: 20220301
  3. PACLITAXEL [Suspect]
     Active Substance: PACLITAXEL
     Indication: HER2 positive breast cancer
     Dosage: DATE OF MOST RECENT DOSE: 20/SEP/2021
     Dates: start: 20210811, end: 20210927
  4. ADO-TRASTUZUMAB EMTANSINE [Suspect]
     Active Substance: ADO-TRASTUZUMAB EMTANSINE
     Indication: HER2 positive breast cancer
     Dosage: MOST RECENT DOSE PRIOR TO THE EVENT: 15/JUN/2020
     Dates: start: 20180523, end: 20200615
  5. LASIX [Concomitant]
     Active Substance: FUROSEMIDE
     Dosage: ONGOING CHECKED
     Dates: start: 20210913
  6. PASPERTIN [Concomitant]
     Dosage: ONGOING  CHECKED
     Dates: start: 20210811
  7. MORPHINE [Concomitant]
     Active Substance: MORPHINE
     Indication: Venous thrombosis
     Dosage: ONGOING  CHECKED
     Dates: start: 20210912
  8. XARELTO [Concomitant]
     Active Substance: RIVAROXABAN
     Indication: Venous thrombosis
     Dosage: ONGOING  CHECKED
     Dates: start: 20210818
  9. NEBIVOLOL [Concomitant]
     Active Substance: NEBIVOLOL
     Indication: Ejection fraction decreased
     Dosage: ONGOING  CHECKED
     Dates: start: 20211005
  10. DIPYRONE [Concomitant]
     Active Substance: DIPYRONE
     Dosage: ONGOING  CHECKED
     Dates: start: 20210907
  11. POLYETHYLENE GLYCOL 3350\POTASSIUM CHLORIDE\SODIUM BICARBONATE\SODIUM [Concomitant]
     Active Substance: POLYETHYLENE GLYCOL 3350\POTASSIUM CHLORIDE\SODIUM BICARBONATE\SODIUM CHLORIDE
     Indication: Constipation
     Dosage: ONGOING CHECKED
     Dates: start: 20210614
  12. ZOFRAN [Concomitant]
     Active Substance: ONDANSETRON HYDROCHLORIDE
     Dosage: ONGOING  CHECKED
     Dates: start: 20210811
  13. LISINOPRIL [Concomitant]
     Active Substance: LISINOPRIL
     Indication: Ejection fraction decreased
     Dosage: ONGOING CHECKED
     Dates: start: 20200815
  14. DIPHENHYDRAMINE [Concomitant]
     Active Substance: DIPHENHYDRAMINE
     Dates: start: 20220315
  15. FENTANYL [Concomitant]
     Active Substance: FENTANYL
     Indication: Pain in extremity
     Dosage: ONGOING - CHECKED
     Dates: start: 20220426
  16. ACETAMINOPHEN [Concomitant]
     Active Substance: ACETAMINOPHEN
     Dates: start: 20220315
  17. PREGABALIN [Concomitant]
     Active Substance: PREGABALIN
     Indication: Pain in extremity
     Dates: start: 20220508
  18. LEVOTHYROXINE SODIUM [Concomitant]
     Active Substance: LEVOTHYROXINE SODIUM
     Indication: Hypothyroidism
     Dates: start: 20211128
  19. DEXAMETHASONE [Concomitant]
     Active Substance: DEXAMETHASONE
     Dosage: ONGOING - CHECKED
     Dates: start: 20220315
  20. ZOFRAN [Concomitant]
     Active Substance: ONDANSETRON HYDROCHLORIDE
     Dosage: ONGOING  CHECKED
     Dates: start: 20220118
  21. LISINOPRIL [Concomitant]
     Active Substance: LISINOPRIL
     Indication: Ejection fraction decreased
     Dosage: ONGOING  CHECKED
     Dates: start: 20200525
  22. CAPECITABINE [Suspect]
     Active Substance: CAPECITABINE
     Indication: HER2 positive breast cancer
     Dosage: TWICE DAILY MOST RECENT DOSE PRIOR TO THE EVENT: 09/NOV/2021
     Dates: start: 20211014, end: 20211109
  23. PACLITAXEL [Suspect]
     Active Substance: PACLITAXEL
     Indication: HER2 positive breast cancer
     Dates: start: 20210927
  24. PACLITAXEL [Suspect]
     Active Substance: PACLITAXEL
     Indication: HER2 positive breast cancer
     Dates: start: 20220118, end: 20220301
  25. PACLITAXEL [Suspect]
     Active Substance: PACLITAXEL
     Indication: HER2 positive breast cancer
     Dates: start: 20210920

REACTIONS (4)
  - Catheter site inflammation [Recovered/Resolved]
  - Catheter site injury [Recovered/Resolved]
  - Catheter site infection [Recovered/Resolved]
  - Rash [Unknown]

NARRATIVE: CASE EVENT DATE: 20220217
